FAERS Safety Report 20612080 (Version 1)
Quarter: 2022Q1

REPORT INFORMATION
  Report Type: Spontaneous
  Country: US (occurrence: US)
  Receive Date: 20220318
  Receipt Date: 20220318
  Transmission Date: 20220424
  Serious: No
  Sender: FDA-Public Use
  Company Number: US-ABBVIE-22K-163-4234400-00

PATIENT
  Sex: Female

DRUGS (1)
  1. RINVOQ [Suspect]
     Active Substance: UPADACITINIB
     Indication: Product used for unknown indication
     Route: 048

REACTIONS (6)
  - Onychoclasis [Unknown]
  - Skin exfoliation [Unknown]
  - Neuropathy peripheral [Unknown]
  - Spondylitis [Unknown]
  - Arthritis [Unknown]
  - Pain in extremity [Unknown]
